FAERS Safety Report 21532977 (Version 1)
Quarter: 2022Q4

REPORT INFORMATION
  Report Type: Spontaneous
  Country: US (occurrence: US)
  Receive Date: 20221101
  Receipt Date: 20221101
  Transmission Date: 20230112
  Serious: No
  Sender: FDA-Public Use
  Company Number: US-CIPLA LTD.-2022US06046

PATIENT
  Sex: Male

DRUGS (3)
  1. ALBUTEROL [Suspect]
     Active Substance: ALBUTEROL
     Indication: Dyspnoea
     Dosage: UNK UNK, PRN 1ST INHALER
     Dates: start: 202209
  2. ALBUTEROL [Suspect]
     Active Substance: ALBUTEROL
     Dosage: UNK, QD, 2ND INHALER
     Dates: start: 202209
  3. ALBUTEROL [Suspect]
     Active Substance: ALBUTEROL
     Dosage: UNK, 3RD INHALER, PATIENT TOOK IT 4-5 TIMES A DAY AS IT WAS PARTIALLY WORKING
     Dates: start: 202209

REACTIONS (11)
  - Malaise [Unknown]
  - Respiration abnormal [Not Recovered/Not Resolved]
  - Pulmonary pain [Not Recovered/Not Resolved]
  - Drug ineffective [Unknown]
  - Device ineffective [Unknown]
  - Device delivery system issue [Unknown]
  - Device maintenance issue [Unknown]
  - Device defective [Unknown]
  - Therapeutic product effect incomplete [Unknown]
  - Drug dose omission by device [Unknown]
  - Product cleaning inadequate [Unknown]

NARRATIVE: CASE EVENT DATE: 20220901
